FAERS Safety Report 19027569 (Version 1)
Quarter: 2021Q1

REPORT INFORMATION
  Report Type: Spontaneous
  Country: US (occurrence: US)
  Receive Date: 20210319
  Receipt Date: 20210319
  Transmission Date: 20210420
  Serious: Yes (Other)
  Sender: FDA-Public Use
  Company Number: US-ASTRAZENECA-2021A137627

PATIENT
  Age: 80 Year
  Sex: Male

DRUGS (3)
  1. TUDORZA [Suspect]
     Active Substance: ACLIDINIUM BROMIDE
     Dosage: ONE PUFF TWICE A DAY
     Route: 055
  2. MUCINEX [Concomitant]
     Active Substance: GUAIFENESIN
     Indication: ILL-DEFINED DISORDER
  3. SYMBICORT [Suspect]
     Active Substance: BUDESONIDE\FORMOTEROL FUMARATE DIHYDRATE
     Dosage: 2 PUFFS TWICE A DAY
     Route: 055

REACTIONS (6)
  - Sleep apnoea syndrome [Unknown]
  - Lip disorder [Unknown]
  - Secretion discharge [Unknown]
  - Herpes zoster [Unknown]
  - Insomnia [Unknown]
  - Malaise [Unknown]
